FAERS Safety Report 14195320 (Version 1)
Quarter: 2017Q4

REPORT INFORMATION
  Report Type: Spontaneous
  Country: US (occurrence: US)
  Receive Date: 20171116
  Receipt Date: 20171116
  Transmission Date: 20180321
  Serious: No
  Sender: FDA-Public Use
  Company Number: US-LEXICON PHARMACEUTICALS, INC-17-1606-01059

PATIENT
  Sex: Female

DRUGS (2)
  1. TELOTRISTAT ETHYL [Suspect]
     Active Substance: TELOTRISTAT ETHYL
     Indication: CARCINOID TUMOUR
     Route: 048
     Dates: start: 20170320
  2. AFINITOR [Concomitant]
     Active Substance: EVEROLIMUS

REACTIONS (4)
  - Vomiting [Not Recovered/Not Resolved]
  - Headache [Unknown]
  - Peripheral swelling [Not Recovered/Not Resolved]
  - Fatigue [Not Recovered/Not Resolved]

NARRATIVE: CASE EVENT DATE: 2017
